FAERS Safety Report 17941088 (Version 1)
Quarter: 2020Q2

REPORT INFORMATION
  Report Type: Spontaneous
  Country: US (occurrence: US)
  Receive Date: 20200624
  Receipt Date: 20200624
  Transmission Date: 20200714
  Serious: Yes (Death, Life-Threatening)
  Sender: FDA-Public Use
  Company Number: None

PATIENT
  Age: 56 Year
  Sex: Male
  Weight: 80.8 kg

DRUGS (22)
  1. FOLIC ACID 1MG NG DAILY [Concomitant]
     Dates: start: 20200611, end: 20200616
  2. HEPARIN 5000 UNITS SUBQ Q8H [Concomitant]
     Dates: start: 20200615, end: 20200616
  3. DUONEB Q4H [Concomitant]
     Dates: start: 20200611, end: 20200615
  4. REMDESIVIR. [Suspect]
     Active Substance: REMDESIVIR
     Indication: COVID-19
     Dosage: ?          OTHER FREQUENCY:200MG D1, 100MG/D;?
     Route: 042
     Dates: start: 20200612, end: 20200612
  5. EPOPROSTENOL CONTINUOUS NEB [Concomitant]
     Dates: start: 20200613, end: 20200616
  6. MVI WITH MINERALS [Concomitant]
     Dates: start: 20200612, end: 20200616
  7. EPINEPHRINE INFUSION [Concomitant]
     Active Substance: EPINEPHRINE
     Dates: start: 20200616, end: 20200616
  8. NOREPINEPHRINE INFUSION [Concomitant]
     Dates: start: 20200611, end: 20200615
  9. PANTOPRAZOLE 40MG IV Q24H [Concomitant]
     Dates: start: 20200611, end: 20200616
  10. PROPOFOL INFUSION [Concomitant]
     Active Substance: PROPOFOL
     Dates: start: 20200611, end: 20200616
  11. ACETAMINOPHEN 325MG PR Q4H [Concomitant]
  12. ALBUMIN 25G IV Q6H [Concomitant]
     Dates: start: 20200611, end: 20200616
  13. LINEZOLID 600MG IV Q12H [Concomitant]
     Dates: start: 20200612, end: 20200614
  14. FENTANYL INFUSION [Concomitant]
     Active Substance: FENTANYL
     Dates: start: 20200611, end: 20200616
  15. PIPERACILLIN AND TAZOBACTAM [Concomitant]
     Active Substance: PIPERACILLIN SODIUM\TAZOBACTAM SODIUM
     Dates: start: 20200613, end: 20200616
  16. SENOKOT-S 8.6/50MG 2 TABS QHS [Concomitant]
     Dates: start: 20200611, end: 20200615
  17. CEFTRIAXONE 1G IV DAILY [Concomitant]
     Dates: start: 20200612, end: 20200613
  18. MIDAZOLAM INFUSION [Concomitant]
     Active Substance: MIDAZOLAM HYDROCHLORIDE
     Dates: start: 20200614, end: 20200616
  19. AZITHROMYCIN 500MG IV Q24H [Concomitant]
     Dates: start: 20200611, end: 20200613
  20. ENOXAPARIN 30MG SUBQ Q12H [Concomitant]
     Dates: start: 20200611, end: 20200614
  21. CISATRACURIUM 10MG IV Q1H PRN VENT SYNCHRONY [Concomitant]
     Dates: start: 20200611, end: 20200615
  22. PHENYLEPHRINE INFUSION [Concomitant]
     Dates: start: 20200615, end: 20200616

REACTIONS (6)
  - Acute respiratory distress syndrome [None]
  - Blood creatinine increased [None]
  - Glomerular filtration rate increased [None]
  - Hypoxia [None]
  - Right ventricular failure [None]
  - Hypotension [None]

NARRATIVE: CASE EVENT DATE: 20200613
